FAERS Safety Report 16798263 (Version 1)
Quarter: 2019Q3

REPORT INFORMATION
  Report Type: Spontaneous
  Country: NL (occurrence: NL)
  Receive Date: 20190912
  Receipt Date: 20190912
  Transmission Date: 20191005
  Serious: Yes (Life-Threatening, Hospitalization, Other)
  Sender: FDA-Public Use
  Company Number: NL-AUROBINDO-AUR-APL-2019-060087

PATIENT
  Age: 13 Month
  Sex: Male
  Weight: 10 kg

DRUGS (8)
  1. MIDAZOLAM [Suspect]
     Active Substance: MIDAZOLAM HYDROCHLORIDE
     Dosage: 0.1 MILLIGRAM/KILOGRAM, MULTIPLE DOSES WERE GIVEN
     Route: 045
  2. ACYCLOVIR. [Concomitant]
     Active Substance: ACYCLOVIR
     Indication: PROPHYLAXIS
     Dosage: UNK
     Route: 065
  3. LEVETIRACETAM. [Suspect]
     Active Substance: LEVETIRACETAM
     Indication: SEIZURE
     Dosage: UNK, GIVEN AT HIGH DOSE
     Route: 042
  4. PHENYTOIN. [Suspect]
     Active Substance: PHENYTOIN
     Indication: SEIZURE
     Dosage: UNK, GIVEN AT HIGH DOSE
     Route: 042
  5. CEFTRIAXONE. [Concomitant]
     Active Substance: CEFTRIAXONE
     Indication: PROPHYLAXIS
     Dosage: UNK
     Route: 065
  6. MIDAZOLAM [Suspect]
     Active Substance: MIDAZOLAM HYDROCHLORIDE
     Indication: SEIZURE
     Dosage: UNK, STARTED AT REDUCED DOSE (0.05MG/KG/HOUR)
     Route: 041
  7. MIDAZOLAM [Suspect]
     Active Substance: MIDAZOLAM HYDROCHLORIDE
     Dosage: UNK, DOSE STARTED UP-TO 0.55MG/KG/HOUR
     Route: 041
  8. MIDAZOLAM [Suspect]
     Active Substance: MIDAZOLAM HYDROCHLORIDE
     Dosage: 0.1 MILLIGRAM/KILOGRAM, MULTIPLE DOSES WERE GIVEN; 0.1 MG/KG EACH
     Route: 042

REACTIONS (2)
  - Drug ineffective [Unknown]
  - Respiratory failure [Recovered/Resolved]
